FAERS Safety Report 8937093 (Version 1)
Quarter: 2012Q4

REPORT INFORMATION
  Report Type: Spontaneous
  Country: US (occurrence: None)
  Receive Date: 20121128
  Receipt Date: 20121128
  Transmission Date: 20130627
  Serious: Yes (Other)
  Sender: FDA-Public Use
  Company Number: None

PATIENT
  Age: 61 Year
  Sex: Male
  Weight: 78.02 kg

DRUGS (1)
  1. LIPITOR [Suspect]
     Indication: CARDIAC DISORDER PROPHYLAXIS
     Dosage: 1 tab daily po
     Route: 048
     Dates: start: 20120905, end: 20121226

REACTIONS (2)
  - Lymphadenopathy [None]
  - Swelling [None]
